FAERS Safety Report 16030767 (Version 1)
Quarter: 2019Q2

REPORT INFORMATION
  Report Type: Spontaneous
  Country: US (occurrence: US)
  Receive Date: 20190304
  Receipt Date: 20190304
  Transmission Date: 20190711
  Serious: Yes (Other)
  Sender: FDA-Public Use
  Company Number: None

PATIENT
  Age: 55 Year
  Sex: Female
  Weight: 75.6 kg

DRUGS (1)
  1. RITUXAN [Suspect]
     Active Substance: RITUXIMAB
     Indication: GRANULOMATOSIS WITH POLYANGIITIS
     Dosage: ?          OTHER FREQUENCY:EVERY 2 WKS 2X/YR;?
     Route: 041
     Dates: start: 20141105, end: 20190304

REACTIONS (3)
  - Flushing [None]
  - Oropharyngeal discomfort [None]
  - Infusion related reaction [None]

NARRATIVE: CASE EVENT DATE: 20190304
